FAERS Safety Report 4523682-2 (Version None)
Quarter: 2004Q4

REPORT INFORMATION
  Report Type: 
  Country: None (occurrence: None)
  Receive Date: 20041210
  Receipt Date: 19920318
  Transmission Date: 20050328
  Serious: Yes (Other)
  Sender: FDA-Public Use
  Company Number: US-GLAXOSMITHKLINE-B0157003A

PATIENT
  Age: 75 Year
  Sex: Male
  Weight: 73.9 kg

DRUGS (9)
  1. CEFTAZIDIME [Suspect]
     Indication: LOBAR PNEUMONIA
     Dosage: 2G TWICE PER DAY
     Route: 042
     Dates: start: 19891121, end: 19891126
  2. DEXAMETHASONE [Concomitant]
     Dosage: 4MG PER DAY
     Route: 048
     Dates: start: 19891119, end: 19891127
  3. GENTAMICIN SULFATE [Concomitant]
     Indication: PNEUMONIA
     Route: 042
     Dates: start: 19891121, end: 19891207
  4. VANCOMYCIN HYDROCHLORIDE [Concomitant]
     Indication: PNEUMONIA
     Route: 042
  5. METRONIDAZOLE [Concomitant]
     Indication: PNEUMONIA
     Dosage: 1500MG PER DAY
     Route: 048
     Dates: start: 19891121, end: 19891127
  6. CIMETIDINE [Concomitant]
     Dosage: 800MG PER DAY
     Route: 048
     Dates: start: 19891108, end: 19891127
  7. SUCRALFATE [Concomitant]
     Dosage: 4G PER DAY
     Route: 048
     Dates: start: 19891113, end: 19891127
  8. FOLIC ACID [Concomitant]
     Indication: RENAL FAILURE
     Dosage: 1MG PER DAY
     Route: 048
     Dates: start: 19891026, end: 19891121
  9. DRIED FERROUS SULPHATE [Concomitant]
     Dosage: 600MG PER DAY
     Route: 048
     Dates: start: 19891026, end: 19891127

REACTIONS (5)
  - ASTHENIA [None]
  - ENCEPHALOPATHY [None]
  - MENTAL IMPAIRMENT [None]
  - NEUROTOXICITY [None]
  - RESTLESSNESS [None]
